FAERS Safety Report 15664896 (Version 3)
Quarter: 2018Q4

REPORT INFORMATION
  Report Type: Spontaneous
  Country: CA (occurrence: CA)
  Receive Date: 20181128
  Receipt Date: 20181221
  Transmission Date: 20190205
  Serious: Yes (Other)
  Sender: FDA-Public Use
  Company Number: CA-PFIZER INC-2018486137

PATIENT
  Age: 56 Year
  Sex: Female

DRUGS (15)
  1. ARAVA [Concomitant]
     Active Substance: LEFLUNOMIDE
     Dosage: 20 MG, DAILY
     Route: 048
  2. SYNTHROID [Concomitant]
     Active Substance: LEVOTHYROXINE SODIUM
     Dosage: 200 UG, DAILY
     Route: 048
     Dates: end: 2018
  3. METHOTREXATE SODIUM. [Suspect]
     Active Substance: METHOTREXATE SODIUM
     Dosage: 15 MG, WEEKLY (2.5 TABS X 6)
     Route: 048
     Dates: end: 2018
  4. LIPITOR [Concomitant]
     Active Substance: ATORVASTATIN CALCIUM
     Dosage: 20 MG, DAILY
     Route: 048
  5. DEPO-MEDROL [Concomitant]
     Active Substance: METHYLPREDNISOLONE ACETATE
     Dosage: 120 MG, INTO BUTTOCK ONCE
     Route: 030
     Dates: start: 20181018, end: 20181018
  6. XELJANZ [Concomitant]
     Active Substance: TOFACITINIB CITRATE
     Indication: RHEUMATOID ARTHRITIS
     Dosage: 5 MG, 2X/DAY
     Route: 048
     Dates: start: 20181018
  7. ADVAIR UNSPEC [Concomitant]
     Dosage: 1 PUFF, 2X/DAY
  8. AVAPRO [Concomitant]
     Active Substance: IRBESARTAN
     Dosage: 300 MG, 1X/DAY (PM)
     Route: 048
  9. IRON [Concomitant]
     Active Substance: IRON
     Indication: ANAEMIA
     Dosage: UNK
     Route: 048
     Dates: start: 2018
  10. NOVO-FOLACID [Concomitant]
     Dosage: 5 MG, 1X/DAY (EXCEPT ON DAY OF MTX)
     Route: 048
  11. SYNTHROID [Concomitant]
     Active Substance: LEVOTHYROXINE SODIUM
     Dosage: 212 UG, DAILY
     Route: 048
     Dates: start: 2018
  12. LEFLUNOMIDE. [Concomitant]
     Active Substance: LEFLUNOMIDE
     Dosage: UNK
     Dates: start: 2015, end: 2018
  13. METHOTREXATE SODIUM. [Suspect]
     Active Substance: METHOTREXATE SODIUM
     Dosage: 15 MG, WEEKLY (2.5 TABS X 6)
     Route: 048
     Dates: start: 20181112
  14. DEPO-MEDROL [Concomitant]
     Active Substance: METHYLPREDNISOLONE ACETATE
     Indication: RHEUMATOID ARTHRITIS
     Dosage: 120 MG, INTO BUTTOCK ONCE
     Route: 030
     Dates: start: 20180109, end: 20180109
  15. TIAZAC [DILTIAZEM HYDROCHLORIDE] [Concomitant]
     Dosage: 180 MG, DAILY
     Route: 048

REACTIONS (12)
  - Joint space narrowing [Unknown]
  - Foot deformity [Unknown]
  - Drug intolerance [Unknown]
  - Sjogren^s syndrome [Unknown]
  - Condition aggravated [Unknown]
  - Drug ineffective [Unknown]
  - Osteopenia [Unknown]
  - Hypothyroidism [Unknown]
  - Enthesopathy [Unknown]
  - Hypertension [Recovering/Resolving]
  - Seizure [Unknown]
  - Anaemia [Unknown]

NARRATIVE: CASE EVENT DATE: 20171018
